FAERS Safety Report 20074608 (Version 1)
Quarter: 2021Q4

REPORT INFORMATION
  Report Type: Spontaneous
  Country: AR (occurrence: AR)
  Receive Date: 20211116
  Receipt Date: 20211116
  Transmission Date: 20220303
  Serious: Yes (Other)
  Sender: FDA-Public Use
  Company Number: AR-PFIZER INC-202101511945

PATIENT
  Age: 57 Year
  Sex: Female

DRUGS (2)
  1. AROMASIN [Suspect]
     Active Substance: EXEMESTANE
  2. EVEROLIMUS [Suspect]
     Active Substance: EVEROLIMUS

REACTIONS (2)
  - Hypokinesia [Unknown]
  - Pain [Unknown]
